FAERS Safety Report 12660451 (Version 2)
Quarter: 2016Q3

REPORT INFORMATION
  Report Type: Spontaneous
  Country: JP (occurrence: JP)
  Receive Date: 20160817
  Receipt Date: 20160817
  Transmission Date: 20161109
  Serious: Yes (Death, Hospitalization)
  Sender: FDA-Public Use
  Company Number: JP-BAYER-2016-142044

PATIENT
  Age: 60 Year
  Sex: Female
  Weight: 59 kg

DRUGS (9)
  1. HIRUDOID [Concomitant]
     Active Substance: GLYCOSAMINOGLYCANS
     Indication: DRUG TOXICITY PROPHYLAXIS
     Dosage: UNK
     Route: 061
     Dates: end: 20160716
  2. URSODEOXYCHOLIC ACID [Concomitant]
     Active Substance: URSODIOL
     Indication: HEPATIC FUNCTION ABNORMAL
     Dosage: DAILY DOSE 600 MG
     Route: 048
     Dates: end: 2016
  3. BARACLUDE [Concomitant]
     Active Substance: ENTECAVIR
     Indication: HEPATITIS B
     Dosage: DAILY DOSE .5 MG
     Route: 048
     Dates: start: 20071025, end: 20160716
  4. MAGNESIUM OXIDE. [Concomitant]
     Active Substance: MAGNESIUM OXIDE
     Indication: CONSTIPATION
     Dosage: DAILY DOSE 750 MG
     Route: 048
     Dates: end: 20160716
  5. LANSOPRAZOLE. [Concomitant]
     Active Substance: LANSOPRAZOLE
     Indication: GASTRIC ULCER
     Dosage: DAILY DOSE 30 MG
     Route: 048
     Dates: end: 20160716
  6. NEXAVAR [Suspect]
     Active Substance: SORAFENIB
     Indication: HEPATOCELLULAR CARCINOMA
     Dosage: 400 MG DAILY, BID
     Route: 048
     Dates: start: 20160702, end: 20160716
  7. RIZABEN [Concomitant]
     Active Substance: TRANILAST
     Dosage: DAILY DOSE 300 MG
     Route: 048
     Dates: end: 20160716
  8. LUNESTA [Suspect]
     Active Substance: ESZOPICLONE
     Indication: INSOMNIA
     Dosage: DAILY DOSE 2 MG
     Route: 048
     Dates: end: 20160716
  9. SPIRONOLACTONE. [Concomitant]
     Active Substance: SPIRONOLACTONE
     Indication: ASCITES
     Dosage: DAILY DOSE 25 MG
     Route: 048
     Dates: end: 20160716

REACTIONS (8)
  - Melaena [Fatal]
  - Pyrexia [Fatal]
  - Gastrointestinal haemorrhage [Fatal]
  - Haematemesis [Fatal]
  - Jaundice [Fatal]
  - Altered state of consciousness [Fatal]
  - Hepatic function abnormal [Fatal]
  - Rash [Fatal]

NARRATIVE: CASE EVENT DATE: 2016
